FAERS Safety Report 4482670-5 (Version None)
Quarter: 2004Q3

REPORT INFORMATION
  Report Type: 
  Country: None (occurrence: None)
  Receive Date: 20040921
  Receipt Date: 20040629
  Transmission Date: 20050211
  Serious: Yes (Other)
  Sender: FDA-Public Use
  Company Number: 163-20785-04070199

PATIENT
  Age: 73 Year
  Sex: Male

DRUGS (7)
  1. THALOMID [Suspect]
     Indication: MULTIPLE MYELOMA
     Dosage: 200 MG, QD, P.O.; 50 MG, QD, ORAL
     Route: 048
     Dates: start: 20040601
  2. THALOMID [Suspect]
     Indication: MULTIPLE MYELOMA
     Dosage: 200 MG, QD, P.O.; 50 MG, QD, ORAL
     Route: 048
     Dates: start: 20040601
  3. THALOMID [Suspect]
     Indication: MULTIPLE MYELOMA
     Dosage: 200 MG, QD, P.O.; 50 MG, QD, ORAL
     Route: 048
     Dates: start: 20040701
  4. DECADRON [Suspect]
     Indication: MULTIPLE MYELOMA
     Dosage: 40 MG
     Dates: start: 20040601
  5. PREDNISONE [Suspect]
     Indication: MULTIPLE MYELOMA
     Dosage: 50 MG, EVERY OTHER DAY
     Dates: start: 20040702
  6. WARFARIN SODIUM [Concomitant]
  7. RANITIDINE [Concomitant]

REACTIONS (3)
  - DIZZINESS [None]
  - ORTHOSTATIC HYPOTENSION [None]
  - SYNCOPE [None]
